FAERS Safety Report 21642040 (Version 2)
Quarter: 2023Q4

REPORT INFORMATION
  Report Type: Spontaneous
  Country: US (occurrence: US)
  Receive Date: 20221125
  Receipt Date: 20231208
  Transmission Date: 20240110
  Serious: No
  Sender: FDA-Public Use
  Company Number: US-BIOGEN-2022BI01171123

PATIENT
  Sex: Female

DRUGS (1)
  1. SPINRAZA [Suspect]
     Active Substance: NUSINERSEN
     Indication: Product used for unknown indication
     Route: 050

REACTIONS (5)
  - Therapeutic response shortened [Unknown]
  - Myalgia [Unknown]
  - Mobility decreased [Unknown]
  - Muscle twitching [Unknown]
  - Dizziness [Unknown]
